FAERS Safety Report 22207740 (Version 4)
Quarter: 2024Q3

REPORT INFORMATION
  Report Type: Spontaneous
  Country: US (occurrence: US)
  Receive Date: 20230413
  Receipt Date: 20240904
  Transmission Date: 20241016
  Serious: Yes (Other)
  Sender: PFIZER
  Company Number: US-PFIZER INC-2020423410

PATIENT
  Age: 67 Year
  Sex: Female

DRUGS (2)
  1. XELJANZ [Suspect]
     Active Substance: TOFACITINIB CITRATE
     Indication: Rheumatoid arthritis
     Dosage: 5 MG, 2X/DAY
     Route: 048
     Dates: start: 2018
  2. XELJANZ [Suspect]
     Active Substance: TOFACITINIB CITRATE
     Dosage: 5 MG
     Route: 048

REACTIONS (7)
  - Carpal tunnel decompression [Unknown]
  - Renal failure [Recovering/Resolving]
  - Organising pneumonia [Recovering/Resolving]
  - Throat irritation [Not Recovered/Not Resolved]
  - Pain [Unknown]
  - Spinal stenosis [Recovering/Resolving]
  - Osteoporosis [Unknown]

NARRATIVE: CASE EVENT DATE: 20221005
